FAERS Safety Report 10435719 (Version 2)
Quarter: 2014Q3

REPORT INFORMATION
  Report Type: Spontaneous
  Country: US (occurrence: US)
  Receive Date: 20140908
  Receipt Date: 20140923
  Transmission Date: 20150326
  Serious: Yes (Disabling)
  Sender: FDA-Public Use
  Company Number: US-SA-2014SA120740

PATIENT
  Age: 70 Year
  Sex: Female

DRUGS (4)
  1. CRESTOR [Concomitant]
     Active Substance: ROSUVASTATIN CALCIUM
  2. LANTUS SOLOSTAR [Suspect]
     Active Substance: INSULIN GLARGINE
     Indication: TYPE 2 DIABETES MELLITUS
     Dosage: DOSE AND DAILY DOSE: 38-45 UNITS
     Route: 065
     Dates: start: 2012
  3. NOVOLOG [Concomitant]
     Active Substance: INSULIN ASPART
  4. SOLOSTAR [Concomitant]
     Active Substance: DEVICE
     Indication: TYPE 2 DIABETES MELLITUS
     Dates: start: 2012

REACTIONS (5)
  - Condition aggravated [Unknown]
  - Inappropriate schedule of drug administration [Unknown]
  - Needle issue [Unknown]
  - Leg amputation [Unknown]
  - Localised infection [Unknown]

NARRATIVE: CASE EVENT DATE: 201304
